FAERS Safety Report 11010614 (Version 1)
Quarter: 2015Q2

REPORT INFORMATION
  Report Type: Spontaneous
  Country: US (occurrence: US)
  Receive Date: 20150410
  Receipt Date: 20150410
  Transmission Date: 20150821
  Serious: No
  Sender: FDA-Public Use
  Company Number: US-ASTRAZENECA-2015SE18575

PATIENT
  Age: 84 Year
  Sex: Female

DRUGS (2)
  1. PRILOSEC OTC [Suspect]
     Active Substance: OMEPRAZOLE MAGNESIUM
     Route: 048
  2. ARTHRITIS [Concomitant]
     Active Substance: TROLAMINE SALICYLATE

REACTIONS (3)
  - Product package associated injury [Unknown]
  - Pain in extremity [Not Recovered/Not Resolved]
  - Onychalgia [Not Recovered/Not Resolved]
